FAERS Safety Report 12562511 (Version 1)
Quarter: 2016Q3

REPORT INFORMATION
  Report Type: Spontaneous
  Country: US (occurrence: US)
  Receive Date: 20160715
  Receipt Date: 20160715
  Transmission Date: 20161109
  Serious: Yes (Other)
  Sender: FDA-Public Use
  Company Number: US-BAYER-2016-137238

PATIENT
  Age: 34 Year
  Sex: Female

DRUGS (2)
  1. MIRENA [Suspect]
     Active Substance: LEVONORGESTREL
     Indication: GENITAL HAEMORRHAGE
  2. MIRENA [Suspect]
     Active Substance: LEVONORGESTREL
     Indication: CONTRACEPTION
     Dosage: 20 MCG/24HR, CONT
     Route: 015
     Dates: start: 2012

REACTIONS (8)
  - Haemorrhage in pregnancy [Not Recovered/Not Resolved]
  - Amenorrhoea [Not Recovered/Not Resolved]
  - Headache [Not Recovered/Not Resolved]
  - Abdominal pain lower [Not Recovered/Not Resolved]
  - Dizziness [Not Recovered/Not Resolved]
  - Nausea [Not Recovered/Not Resolved]
  - Pregnancy with contraceptive device [Not Recovered/Not Resolved]
  - Back pain [Not Recovered/Not Resolved]

NARRATIVE: CASE EVENT DATE: 201607
